FAERS Safety Report 10569280 (Version 6)
Quarter: 2015Q1

REPORT INFORMATION
  Report Type: Report from Study
  Country: CA (occurrence: CA)
  Receive Date: 20141106
  Receipt Date: 20150126
  Transmission Date: 20150720
  Serious: Yes (Life-Threatening, Hospitalization)
  Sender: FDA-Public Use
  Company Number: CA-CELGENE-CAN-2014100762

PATIENT
  Age: 79 Year
  Sex: Male
  Weight: 75 kg

DRUGS (72)
  1. DIPHENHYDRAMINE [Concomitant]
     Active Substance: DIPHENHYDRAMINE
     Indication: PREMEDICATION
     Dosage: 20-50MG
     Route: 041
     Dates: start: 20131031
  2. ONDANSETRON [Concomitant]
     Active Substance: ONDANSETRON
     Dosage: 8 - 16MG
     Route: 048
     Dates: start: 20141005
  3. VITAMIN K [Concomitant]
     Active Substance: PHYTONADIONE
     Route: 048
     Dates: start: 20141012, end: 20141012
  4. VITAMIN K [Concomitant]
     Active Substance: PHYTONADIONE
     Route: 048
     Dates: start: 20140609, end: 20140609
  5. FUROSEMIDE. [Concomitant]
     Active Substance: FUROSEMIDE
     Indication: PULMONARY OEDEMA
     Route: 048
     Dates: start: 20141009
  6. ROSUVASTATIN [Concomitant]
     Active Substance: ROSUVASTATIN
     Indication: HYPERCHOLESTEROLAEMIA
     Route: 048
     Dates: start: 1980
  7. POLYETHYLENE GLYCOL [Concomitant]
     Active Substance: POLYETHYLENE GLYCOLS
     Route: 048
     Dates: start: 20140607
  8. ALUMINUM AND MAGNESIUM HYDROXIDE [Concomitant]
     Indication: DYSPEPSIA
     Route: 048
     Dates: start: 20141005, end: 20141017
  9. ACETAMINOPHEN. [Concomitant]
     Active Substance: ACETAMINOPHEN
     Route: 048
     Dates: start: 20131116, end: 20131213
  10. CC-5013 [Suspect]
     Active Substance: LENALIDOMIDE
     Route: 048
     Dates: start: 20141103
  11. AZACITIDINE INJECTABLE [Suspect]
     Active Substance: AZACITIDINE
     Indication: ACUTE MYELOID LEUKAEMIA
     Route: 058
     Dates: start: 20131101, end: 20131107
  12. METOPROLOL [Concomitant]
     Active Substance: METOPROLOL
     Route: 048
     Dates: start: 20131125, end: 20131201
  13. METOPROLOL [Concomitant]
     Active Substance: METOPROLOL
     Route: 048
     Dates: start: 20131204, end: 20140126
  14. METOPROLOL [Concomitant]
     Active Substance: METOPROLOL
     Route: 048
     Dates: start: 20140616, end: 20140623
  15. ONDANSETRON [Concomitant]
     Active Substance: ONDANSETRON
     Indication: PROPHYLAXIS
     Route: 048
     Dates: start: 20131213
  16. VITAMIN K [Concomitant]
     Active Substance: PHYTONADIONE
     Route: 048
     Dates: start: 20140617, end: 20140617
  17. LOPERAMIDE [Concomitant]
     Active Substance: LOPERAMIDE
     Indication: DIARRHOEA
     Dosage: 1000 MILLIGRAM
     Route: 048
     Dates: start: 20140922, end: 20140922
  18. METOCLOPRAMIDE. [Concomitant]
     Active Substance: METOCLOPRAMIDE
     Dosage: 10 - 20MG
     Route: 048
     Dates: start: 20141005
  19. FUROSEMIDE. [Concomitant]
     Active Substance: FUROSEMIDE
     Route: 041
     Dates: start: 20140605, end: 20140605
  20. CC-5013 [Suspect]
     Active Substance: LENALIDOMIDE
     Indication: ACUTE MYELOID LEUKAEMIA
     Route: 048
     Dates: start: 20131108, end: 20131128
  21. METOPROLOL [Concomitant]
     Active Substance: METOPROLOL
     Dosage: 25-50MG
     Route: 048
     Dates: start: 20140219, end: 20140603
  22. METOPROLOL [Concomitant]
     Active Substance: METOPROLOL
     Route: 048
     Dates: start: 20140610, end: 20140611
  23. POTASSIUM CHLORIDE. [Concomitant]
     Active Substance: POTASSIUM CHLORIDE
     Indication: PROPHYLAXIS
     Route: 048
     Dates: start: 20131103, end: 20131105
  24. POTASSIUM CHLORIDE. [Concomitant]
     Active Substance: POTASSIUM CHLORIDE
     Indication: HYPOKALAEMIA
     Route: 048
     Dates: start: 20140605, end: 20140621
  25. ACETAMINOPHEN. [Concomitant]
     Active Substance: ACETAMINOPHEN
     Indication: PYREXIA
     Route: 048
     Dates: start: 20141005
  26. ACETAMINOPHEN. [Concomitant]
     Active Substance: ACETAMINOPHEN
     Indication: ARTHRITIS
     Route: 048
     Dates: start: 1993, end: 20131030
  27. AZACITIDINE INJECTABLE [Suspect]
     Active Substance: AZACITIDINE
     Route: 058
     Dates: start: 20140922, end: 20140928
  28. METOPROLOL [Concomitant]
     Active Substance: METOPROLOL
     Route: 048
     Dates: start: 20140604, end: 20140605
  29. ONDANSETRON [Concomitant]
     Active Substance: ONDANSETRON
     Route: 048
     Dates: start: 20131101, end: 20131107
  30. ONDANSETRON [Concomitant]
     Active Substance: ONDANSETRON
     Route: 041
     Dates: start: 20140602, end: 20140609
  31. VITAMIN K [Concomitant]
     Active Substance: PHYTONADIONE
     Route: 048
     Dates: start: 20141009, end: 20141009
  32. FUROSEMIDE. [Concomitant]
     Active Substance: FUROSEMIDE
     Indication: OEDEMA
     Route: 041
     Dates: start: 20141014, end: 20141014
  33. OXYGEN. [Concomitant]
     Active Substance: OXYGEN
     Indication: DYSPNOEA
     Route: 045
     Dates: start: 20141008, end: 20141016
  34. VERAPRAMIL [Concomitant]
     Indication: ATRIAL FIBRILLATION
     Route: 048
     Dates: start: 2003, end: 20131124
  35. VERAPRAMIL [Concomitant]
     Route: 048
     Dates: start: 20140620
  36. CC-5013 [Suspect]
     Active Substance: LENALIDOMIDE
     Route: 048
     Dates: start: 20141017, end: 20141019
  37. METOPROLOL [Concomitant]
     Active Substance: METOPROLOL
     Indication: ATRIAL FIBRILLATION
     Route: 048
     Dates: start: 20140624
  38. METOPROLOL [Concomitant]
     Active Substance: METOPROLOL
     Route: 048
     Dates: start: 20131201, end: 20131204
  39. METOPROLOL [Concomitant]
     Active Substance: METOPROLOL
     Route: 048
     Dates: start: 20140623, end: 20140624
  40. VITAMIN K [Concomitant]
     Active Substance: PHYTONADIONE
     Route: 048
     Dates: start: 20140606, end: 20140606
  41. MAGNESIUM OXIDE. [Concomitant]
     Active Substance: MAGNESIUM OXIDE
     Indication: BLOOD MAGNESIUM DECREASED
     Route: 048
     Dates: start: 20141009
  42. FUROSEMIDE. [Concomitant]
     Active Substance: FUROSEMIDE
     Indication: DYSPNOEA
     Route: 041
     Dates: start: 20141011, end: 20141011
  43. FUROSEMIDE. [Concomitant]
     Active Substance: FUROSEMIDE
     Indication: FLUID OVERLOAD
     Route: 041
     Dates: start: 20131127, end: 20131129
  44. ACETAMINOPHEN. [Concomitant]
     Active Substance: ACETAMINOPHEN
     Indication: PAIN
     Dosage: 650 - 975MG
     Route: 048
     Dates: start: 20141005
  45. CC-5013 [Suspect]
     Active Substance: LENALIDOMIDE
     Route: 048
     Dates: start: 20140922, end: 20141019
  46. METOPROLOL [Concomitant]
     Active Substance: METOPROLOL
     Dosage: 2 TABLET
     Route: 048
     Dates: start: 20141014
  47. METOPROLOL [Concomitant]
     Active Substance: METOPROLOL
     Route: 048
     Dates: start: 20140127, end: 20140218
  48. METOPROLOL [Concomitant]
     Active Substance: METOPROLOL
     Route: 048
     Dates: start: 20140605, end: 20140609
  49. CETIRIZINE HYDROCHLORIDE. [Concomitant]
     Active Substance: CETIRIZINE HYDROCHLORIDE
     Indication: RASH
     Route: 048
     Dates: start: 20140630, end: 20140710
  50. VITAMIN K [Concomitant]
     Active Substance: PHYTONADIONE
     Route: 048
     Dates: start: 20140602, end: 20140602
  51. VITAMIN K [Concomitant]
     Active Substance: PHYTONADIONE
     Route: 048
     Dates: start: 20140531, end: 20140531
  52. ACETAMINOPHEN. [Concomitant]
     Active Substance: ACETAMINOPHEN
     Indication: PNEUMONIA
     Route: 048
     Dates: start: 20131031
  53. ACETAMINOPHEN. [Concomitant]
     Active Substance: ACETAMINOPHEN
     Indication: PREMEDICATION
     Route: 048
     Dates: start: 20140109, end: 20140109
  54. DIPHENHYDRAMINE [Concomitant]
     Active Substance: DIPHENHYDRAMINE
     Route: 048
     Dates: start: 20140625, end: 20140630
  55. METOPROLOL [Concomitant]
     Active Substance: METOPROLOL
     Route: 048
     Dates: start: 20141013, end: 20141014
  56. METOPROLOL [Concomitant]
     Active Substance: METOPROLOL
     Route: 048
     Dates: start: 20140611, end: 20140612
  57. VITAMIN K [Concomitant]
     Active Substance: PHYTONADIONE
     Route: 048
     Dates: start: 20141010, end: 20141010
  58. VITAMIN K [Concomitant]
     Active Substance: PHYTONADIONE
     Route: 048
     Dates: start: 20140612, end: 20140612
  59. POTASSIUM CHLORIDE. [Concomitant]
     Active Substance: POTASSIUM CHLORIDE
     Indication: BLOOD POTASSIUM DECREASED
     Dosage: 1000 MILLIGRAM
     Route: 048
     Dates: start: 20141009, end: 20141014
  60. FUROSEMIDE. [Concomitant]
     Active Substance: FUROSEMIDE
     Route: 041
     Dates: start: 20140603, end: 20140603
  61. OXAZEPAM. [Concomitant]
     Active Substance: OXAZEPAM
     Indication: INSOMNIA
     Dosage: 15-30MG
     Route: 048
     Dates: start: 20131102
  62. POLYETHYLENE GLYCOL [Concomitant]
     Active Substance: POLYETHYLENE GLYCOLS
     Indication: CONSTIPATION
     Route: 048
     Dates: start: 20131111, end: 20131204
  63. POLYETHYLENE GLYCOL [Concomitant]
     Active Substance: POLYETHYLENE GLYCOLS
     Route: 048
     Dates: start: 20140206, end: 20140606
  64. ACETAMINOPHEN. [Concomitant]
     Active Substance: ACETAMINOPHEN
     Indication: THROMBOPHLEBITIS
     Route: 048
     Dates: start: 20131031, end: 20131115
  65. METOPROLOL [Concomitant]
     Active Substance: METOPROLOL
     Route: 048
     Dates: start: 20140603, end: 20140603
  66. METOPROLOL [Concomitant]
     Active Substance: METOPROLOL
     Route: 048
     Dates: start: 20140613, end: 20140613
  67. CETIRIZINE HYDROCHLORIDE. [Concomitant]
     Active Substance: CETIRIZINE HYDROCHLORIDE
     Dosage: 1 GRAM
     Route: 048
     Dates: start: 20140811
  68. LOPERAMIDE [Concomitant]
     Active Substance: LOPERAMIDE
     Route: 048
     Dates: start: 20141009
  69. METOCLOPRAMIDE. [Concomitant]
     Active Substance: METOCLOPRAMIDE
     Indication: NAUSEA
     Dosage: 10 - 20MG
     Route: 041
     Dates: start: 20141005
  70. METOCLOPRAMIDE. [Concomitant]
     Active Substance: METOCLOPRAMIDE
     Dosage: 10 - 20MG
     Route: 048
     Dates: start: 20131102, end: 20131102
  71. FUROSEMIDE. [Concomitant]
     Active Substance: FUROSEMIDE
     Indication: CARDIAC FAILURE
     Route: 041
     Dates: start: 20131125, end: 20131125
  72. FUROSEMIDE. [Concomitant]
     Active Substance: FUROSEMIDE
     Route: 041
     Dates: start: 20140606, end: 20140614

REACTIONS (3)
  - Klebsiella sepsis [Recovered/Resolved]
  - Cellulitis [Recovered/Resolved]
  - Urinary tract infection [Recovered/Resolved]

NARRATIVE: CASE EVENT DATE: 20141004
